FAERS Safety Report 13828298 (Version 2)
Quarter: 2017Q3

REPORT INFORMATION
  Report Type: Spontaneous
  Country: US (occurrence: US)
  Receive Date: 20170803
  Receipt Date: 20170809
  Transmission Date: 20171127
  Serious: No
  Sender: FDA-Public Use
  Company Number: US-PFIZER INC-2017335924

PATIENT
  Age: 65 Year
  Sex: Female

DRUGS (3)
  1. METHOTREXATE SODIUM. [Suspect]
     Active Substance: METHOTREXATE SODIUM
     Dosage: 5 DF, WEEKLY
  2. XELJANZ [Suspect]
     Active Substance: TOFACITINIB CITRATE
     Indication: RHEUMATOID ARTHRITIS
     Dosage: 5 MG, UNK
  3. ZOLOFT [Suspect]
     Active Substance: SERTRALINE HYDROCHLORIDE
     Dosage: 50 MG, DAILY

REACTIONS (8)
  - Arthralgia [Unknown]
  - Musculoskeletal stiffness [Unknown]
  - Feeling of despair [Unknown]
  - Therapeutic response unexpected [Recovering/Resolving]
  - Pre-existing condition improved [Recovering/Resolving]
  - Joint swelling [Unknown]
  - Nodal osteoarthritis [Not Recovered/Not Resolved]
  - Pain in extremity [Unknown]
